FAERS Safety Report 7780869-3 (Version None)
Quarter: 2011Q3

REPORT INFORMATION
  Report Type: 
  Country: None (occurrence: None)
  Receive Date: 20110923
  Receipt Date: 20110916
  Transmission Date: 20111222
  Serious: Yes (Death)
  Sender: FDA-Public Use
  Company Number: 2011SP003127

PATIENT
  Age: 48 Year
  Sex: Female
  Weight: 94.09 kg

DRUGS (6)
  1. LATUDA [Suspect]
     Indication: BIPOLAR I DISORDER
     Dosage: 80 MG; QD;
     Dates: start: 20110504
  2. AMBIEN [Concomitant]
  3. BUPROPION HCL [Concomitant]
  4. LAMICTAL [Concomitant]
  5. REMERON [Concomitant]
  6. WELLUTRIN [Concomitant]

REACTIONS (3)
  - OVERDOSE [None]
  - ANXIETY [None]
  - POOR QUALITY SLEEP [None]
